FAERS Safety Report 19105811 (Version 3)
Quarter: 2021Q3

REPORT INFORMATION
  Report Type: Spontaneous
  Country: US (occurrence: US)
  Receive Date: 20210408
  Receipt Date: 20210719
  Transmission Date: 20211014
  Serious: Yes (Other)
  Sender: FDA-Public Use
  Company Number: US-JNJFOC-20210358457

PATIENT
  Age: 71 Year
  Sex: Female
  Weight: 113.5 kg

DRUGS (4)
  1. VITAMIN D [ERGOCALCIFEROL] [Concomitant]
     Active Substance: ERGOCALCIFEROL
  2. REMICADE [Suspect]
     Active Substance: INFLIXIMAB
     Indication: COLITIS ULCERATIVE
     Route: 042
     Dates: start: 20210118
  3. LISINOPRIL. [Concomitant]
     Active Substance: LISINOPRIL
  4. METAMUCIL THERAPY FOR REGULARITY [Concomitant]
     Active Substance: PSYLLIUM HUSK

REACTIONS (10)
  - Pharyngeal swelling [Not Recovered/Not Resolved]
  - Ear pain [Unknown]
  - Paralysis [Not Recovered/Not Resolved]
  - Headache [Unknown]
  - Swelling [Not Recovered/Not Resolved]
  - Breast swelling [Not Recovered/Not Resolved]
  - Arthralgia [Unknown]
  - Product administration error [Unknown]
  - Infusion site swelling [Not Recovered/Not Resolved]
  - Adverse event [Unknown]

NARRATIVE: CASE EVENT DATE: 20210118
